FAERS Safety Report 7727537-1 (Version None)
Quarter: 2011Q3

REPORT INFORMATION
  Report Type: 
  Country: None (occurrence: None)
  Receive Date: 20110902
  Receipt Date: 20110831
  Transmission Date: 20111222
  Serious: No
  Sender: FDA-Public Use
  Company Number: US-PFIZER INC-2011203936

PATIENT
  Sex: Female
  Weight: 79.4 kg

DRUGS (5)
  1. VITAMIN B COMPLEX CAP [Concomitant]
     Dosage: UNK
  2. PREMARIN [Suspect]
     Indication: OESTROGEN REPLACEMENT THERAPY
     Dosage: 1.25 MG, UNK
  3. LYSINE [Concomitant]
     Indication: NASOPHARYNGITIS
     Dosage: UNK
  4. MULTI-VITAMINS [Concomitant]
     Dosage: UNK
  5. ATENOLOL [Concomitant]
     Indication: PALPITATIONS
     Dosage: 25 MG, DAILY

REACTIONS (1)
  - HOT FLUSH [None]
